FAERS Safety Report 13376408 (Version 1)
Quarter: 2017Q1

REPORT INFORMATION
  Report Type: Spontaneous
  Country: US (occurrence: US)
  Receive Date: 20170328
  Receipt Date: 20170328
  Transmission Date: 20170429
  Serious: No
  Sender: FDA-Public Use
  Company Number: US-PFIZER INC-2017092921

PATIENT
  Age: 81 Year
  Sex: Female
  Weight: 58.2 kg

DRUGS (1)
  1. IBRANCE [Suspect]
     Active Substance: PALBOCICLIB
     Indication: BREAST CANCER FEMALE
     Dosage: 75 MG, CYCLIC (TAKE 1 EVERY DAY FOR 21 DAYS, 7 DAYS OFF)
     Route: 048
     Dates: start: 201701, end: 201702

REACTIONS (3)
  - Hypersomnia [Unknown]
  - Fatigue [Unknown]
  - Drug dose omission [Unknown]

NARRATIVE: CASE EVENT DATE: 201701
